FAERS Safety Report 25939676 (Version 1)
Quarter: 2025Q4

REPORT INFORMATION
  Report Type: Spontaneous
  Country: CN (occurrence: CN)
  Receive Date: 20251020
  Receipt Date: 20251020
  Transmission Date: 20260118
  Serious: Yes (Death)
  Sender: ROCHE
  Company Number: CN-ROCHE-10000413428

PATIENT
  Age: 28 Year
  Sex: Female

DRUGS (7)
  1. RITUXIMAB [Suspect]
     Active Substance: RITUXIMAB
     Indication: Acute lymphocytic leukaemia
     Route: 065
     Dates: start: 20220908
  2. GEMCITABINE [Suspect]
     Active Substance: GEMCITABINE
     Indication: Acute lymphocytic leukaemia
     Route: 065
     Dates: start: 20220908
  3. OXALIPLATIN [Suspect]
     Active Substance: OXALIPLATIN
     Indication: Acute lymphocytic leukaemia
     Route: 065
     Dates: start: 20220908
  4. IFOSFAMIDE [Concomitant]
     Active Substance: IFOSFAMIDE
  5. CARBOPLATIN [Concomitant]
     Active Substance: CARBOPLATIN
  6. ETOPOSIDE [Concomitant]
     Active Substance: ETOPOSIDE
  7. SELINEXOR [Concomitant]
     Active Substance: SELINEXOR

REACTIONS (2)
  - Off label use [Unknown]
  - Septic shock [Fatal]
